FAERS Safety Report 14715333 (Version 2)
Quarter: 2018Q2

REPORT INFORMATION
  Report Type: Spontaneous
  Country: US (occurrence: US)
  Receive Date: 20180404
  Receipt Date: 20180418
  Transmission Date: 20180711
  Serious: Yes (Hospitalization)
  Sender: FDA-Public Use
  Company Number: CN-IMPAX LABORATORIES, INC-2018-IPXL-01035

PATIENT
  Age: 48 Year
  Sex: Male

DRUGS (4)
  1. OLANZAPINE. [Suspect]
     Active Substance: OLANZAPINE
     Indication: SCHIZOAFFECTIVE DISORDER
     Dosage: UNK
     Route: 065
  2. DIVALPROEX SODIUM ER [Suspect]
     Active Substance: DIVALPROEX SODIUM
     Indication: SCHIZOAFFECTIVE DISORDER
     Dosage: UNK
     Route: 065
  3. RISPERIDONE. [Suspect]
     Active Substance: RISPERIDONE
     Indication: SCHIZOAFFECTIVE DISORDER
     Dosage: UNK
     Route: 065
  4. CLONAZEPAM. [Suspect]
     Active Substance: CLONAZEPAM
     Indication: SCHIZOAFFECTIVE DISORDER
     Dosage: UNK
     Route: 065

REACTIONS (17)
  - Respiratory rate increased [Unknown]
  - Thrombocytopenia [Unknown]
  - Pyrexia [Unknown]
  - Cough [Unknown]
  - Stress [Unknown]
  - Rhabdomyolysis [Recovered/Resolved]
  - Renal failure [Recovered/Resolved]
  - Fall [Unknown]
  - Back pain [Unknown]
  - Transaminases increased [Recovered/Resolved]
  - Abdominal pain [Unknown]
  - Tremor [Unknown]
  - Hyperthermia [Recovered/Resolved]
  - Muscle rigidity [Recovering/Resolving]
  - Dysphagia [Unknown]
  - Constipation [Recovered/Resolved]
  - Bandaemia [Recovered/Resolved]
